FAERS Safety Report 24595303 (Version 1)
Quarter: 2024Q4

REPORT INFORMATION
  Report Type: Report from Study
  Country: TW (occurrence: TW)
  Receive Date: 20241108
  Receipt Date: 20241108
  Transmission Date: 20250114
  Serious: Yes (Hospitalization, Other)
  Sender: ALEXION PHARMACEUTICALS
  Company Number: TW-AstraZeneca-CH-00732539A

PATIENT
  Age: 58 Year

DRUGS (4)
  1. DURVALUMAB [Suspect]
     Active Substance: DURVALUMAB
     Indication: Lung neoplasm malignant
     Dosage: ,FREQUENCY:EVERY 3 WEEKS
  2. DURVALUMAB [Suspect]
     Active Substance: DURVALUMAB
     Dosage: ,FREQUENCY:EVERY 3 WEEKS
  3. DURVALUMAB [Suspect]
     Active Substance: DURVALUMAB
     Dosage: ,FREQUENCY:EVERY 3 WEEKS
  4. DURVALUMAB [Suspect]
     Active Substance: DURVALUMAB
     Dosage: ,FREQUENCY:EVERY 3 WEEKS

REACTIONS (3)
  - Brain oedema [Unknown]
  - Altered state of consciousness [Unknown]
  - Hypokinesia [Unknown]
